FAERS Safety Report 24964720 (Version 1)
Quarter: 2025Q1

REPORT INFORMATION
  Report Type: Spontaneous
  Country: CA (occurrence: CA)
  Receive Date: 20250213
  Receipt Date: 20250213
  Transmission Date: 20250409
  Serious: Yes (Other)
  Sender: AUROBINDO
  Company Number: CA-AUROBINDO-AUR-APL-2025-007173

PATIENT
  Age: 26 Year
  Sex: Male

DRUGS (16)
  1. LACOSAMIDE [Interacting]
     Active Substance: LACOSAMIDE
     Indication: Product used for unknown indication
     Route: 065
  2. CANNABIDIOL [Interacting]
     Active Substance: CANNABIDIOL
     Indication: Product used for unknown indication
     Dosage: 6.5 MILLILITER, TWO TIMES A DAY
     Route: 065
  3. CANNABIDIOL [Interacting]
     Active Substance: CANNABIDIOL
     Dosage: 5.0 MILLILITER, ONCE A DAY
     Route: 065
  4. CLOBAZAM [Interacting]
     Active Substance: CLOBAZAM
     Indication: Product used for unknown indication
     Route: 065
  5. XCOPRI [Interacting]
     Active Substance: CENOBAMATE
     Indication: Partial seizures
     Dosage: 75 MILLIGRAM, ONCE A DAY
     Route: 065
  6. XCOPRI [Interacting]
     Active Substance: CENOBAMATE
     Indication: Epilepsy
     Dosage: 150.0 MILLIGRAM, ONCE A DAY
  7. XCOPRI [Interacting]
     Active Substance: CENOBAMATE
     Dosage: 125.0 MILLIGRAM, ONCE A DAY
     Route: 065
  8. XCOPRI [Interacting]
     Active Substance: CENOBAMATE
     Dosage: 100 MILLIGRAM, ONCE A DAY
     Route: 065
  9. XCOPRI [Interacting]
     Active Substance: CENOBAMATE
     Dosage: 50 MILLIGRAM, ONCE A DAY
     Route: 065
  10. XCOPRI [Interacting]
     Active Substance: CENOBAMATE
     Dosage: 25 MILLIGRAM, ONCE A DAY
     Route: 065
  11. XCOPRI [Interacting]
     Active Substance: CENOBAMATE
     Dosage: 175.0 MILLIGRAM, ONCE A DAY
     Route: 065
  12. XCOPRI [Interacting]
     Active Substance: CENOBAMATE
     Dosage: 12.5 MILLIGRAM, ONCE A DAY
     Route: 065
  13. CLONAZEPAM [Concomitant]
     Active Substance: CLONAZEPAM
     Indication: Product used for unknown indication
     Route: 065
  14. VITAMINS [Concomitant]
     Active Substance: VITAMINS
     Indication: Product used for unknown indication
     Route: 065
  15. NEXIUM [Concomitant]
     Active Substance: ESOMEPRAZOLE MAGNESIUM
     Indication: Product use in unapproved indication
     Route: 065
  16. VITAMIN D [Concomitant]
     Active Substance: VITAMIN D NOS
     Indication: Product used for unknown indication
     Route: 065

REACTIONS (8)
  - Depressed level of consciousness [Unknown]
  - Fatigue [Unknown]
  - Hypersomnia [Unknown]
  - Impaired quality of life [Unknown]
  - Somnolence [Unknown]
  - Seizure [Unknown]
  - Drug interaction [Unknown]
  - Off label use [Unknown]
